FAERS Safety Report 13809384 (Version 3)
Quarter: 2018Q2

REPORT INFORMATION
  Report Type: Spontaneous
  Country: US (occurrence: US)
  Receive Date: 20170728
  Receipt Date: 20180508
  Transmission Date: 20180711
  Serious: Yes (Hospitalization)
  Sender: FDA-Public Use
  Company Number: US-SA-2017SA138769

PATIENT
  Sex: Female
  Weight: 124.28 kg

DRUGS (5)
  1. FABRAZYME [Suspect]
     Active Substance: AGALSIDASE BETA
     Indication: FABRY^S DISEASE
     Route: 041
  2. FABRAZYME [Suspect]
     Active Substance: AGALSIDASE BETA
     Indication: FABRY^S DISEASE
     Dosage: FREQ: Q2 WEEKS
     Route: 041
     Dates: start: 20170417
  3. RAYALDEE [Concomitant]
     Active Substance: CALCIFEDIOL
     Route: 048
     Dates: start: 20180423
  4. CALCIUM [Concomitant]
     Active Substance: CALCIUM
     Route: 042
  5. FABRAZYME [Suspect]
     Active Substance: AGALSIDASE BETA
     Indication: FABRY^S DISEASE
     Dosage: FREQ: Q2 WEEKS
     Route: 041
     Dates: start: 20170417

REACTIONS (11)
  - Asthenia [Recovering/Resolving]
  - Hyperlipidaemia [Unknown]
  - Dizziness [Recovering/Resolving]
  - Fall [Unknown]
  - Cardiac valve fibroelastoma [Unknown]
  - Transient ischaemic attack [Unknown]
  - Ischaemic stroke [Unknown]
  - Pain [Unknown]
  - Blood pressure increased [Unknown]
  - Grip strength decreased [Unknown]
  - Sinus bradycardia [Unknown]

NARRATIVE: CASE EVENT DATE: 20170427
